FAERS Safety Report 7168113-1 (Version None)
Quarter: 2010Q4

REPORT INFORMATION
  Report Type: 
  Country: None (occurrence: None)
  Receive Date: 20101216
  Receipt Date: 20101208
  Transmission Date: 20110411
  Serious: Yes (Death, Hospitalization)
  Sender: FDA-Public Use
  Company Number: JP-PFIZER INC-2010132816

PATIENT
  Age: 80 Year
  Sex: Male
  Weight: 52 kg

DRUGS (6)
  1. LYRICA [Suspect]
     Indication: NEURALGIA
     Dosage: 75 MG, 1X/DAY
     Route: 048
     Dates: start: 20101012, end: 20101015
  2. NORVASC [Concomitant]
     Dosage: UNK
     Route: 048
  3. MICARDIS [Concomitant]
     Dosage: UNK
     Route: 048
  4. LASIX [Concomitant]
     Route: 048
  5. TAKEPRON [Concomitant]
     Dosage: UNK
  6. INSULIN [Concomitant]
     Dosage: UNK

REACTIONS (4)
  - DIZZINESS [None]
  - FALL [None]
  - PAIN [None]
  - PNEUMONIA [None]
